FAERS Safety Report 6541322-8 (Version None)
Quarter: 2010Q1

REPORT INFORMATION
  Report Type: 
  Country: None (occurrence: None)
  Receive Date: 20100118
  Receipt Date: 20091109
  Transmission Date: 20100710
  Serious: No
  Sender: FDA-Public Use
  Company Number: US-ALLERGAN-0912622US

PATIENT
  Sex: Female

DRUGS (3)
  1. LATISSE [Suspect]
     Indication: HYPOTRICHOSIS
     Dosage: UNK
     Route: 061
  2. SYNTHROID [Concomitant]
     Dosage: UNK
  3. MAXZIDE [Concomitant]
     Dosage: UNK

REACTIONS (2)
  - BLISTER [None]
  - SKIN HYPERPIGMENTATION [None]
